FAERS Safety Report 5422834-7 (Version None)
Quarter: 2007Q3

REPORT INFORMATION
  Report Type: 
  Country: None (occurrence: None)
  Receive Date: 20070822
  Receipt Date: 20070814
  Transmission Date: 20080115
  Serious: Yes (Hospitalization)
  Sender: FDA-Public Use
  Company Number: GB-SHR-GB-2007-021243

PATIENT

DRUGS (1)
  1. BETAFERON [Suspect]
     Route: 058

REACTIONS (1)
  - ENTEROCOLITIS VIRAL [None]
